FAERS Safety Report 6070877-5 (Version None)
Quarter: 2009Q1

REPORT INFORMATION
  Report Type: 
  Country: None (occurrence: None)
  Receive Date: 20090209
  Receipt Date: 20081104
  Transmission Date: 20090719
  Serious: No
  Sender: FDA-Public Use
  Company Number: A0754792A

PATIENT
  Age: 35 Year
  Sex: Male

DRUGS (6)
  1. PAXIL [Suspect]
     Dosage: 40MG PER DAY
     Route: 048
     Dates: start: 19941001, end: 20081029
  2. PAXIL CR [Suspect]
     Route: 048
     Dates: start: 20020701, end: 20020901
  3. PRILOSEC [Concomitant]
  4. MOTION SICKNESS MEDICATION [Concomitant]
  5. TYLENOL [Concomitant]
  6. GINGER [Concomitant]

REACTIONS (4)
  - DIZZINESS [None]
  - DRUG INEFFECTIVE [None]
  - NAUSEA [None]
  - PARAESTHESIA [None]
